FAERS Safety Report 7331402-1 (Version None)
Quarter: 2011Q1

REPORT INFORMATION
  Report Type: 
  Country: None (occurrence: None)
  Receive Date: 20110304
  Receipt Date: 20110219
  Transmission Date: 20110831
  Serious: Yes (Life-Threatening, Other)
  Sender: FDA-Public Use
  Company Number: MX-ELI_LILLY_AND_COMPANY-MX201102005776

PATIENT
  Age: 63 Year
  Sex: Female

DRUGS (1)
  1. CYMBALTA [Suspect]
     Dosage: UNK UNK, UNKNOWN
     Route: 065

REACTIONS (3)
  - DYSPHAGIA [None]
  - ANAPHYLACTIC REACTION [None]
  - DYSPNOEA [None]
